FAERS Safety Report 20159859 (Version 2)
Quarter: 2021Q4

REPORT INFORMATION
  Report Type: Other
  Country: CA (occurrence: CA)
  Receive Date: 20211208
  Receipt Date: 20211223
  Transmission Date: 20220304
  Serious: Yes (Hospitalization, Other)
  Sender: FDA-Public Use
  Company Number: CA-002147023-NVSC2020CA166934

PATIENT
  Age: 73 Year
  Sex: Male

DRUGS (12)
  1. XOLAIR [Suspect]
     Active Substance: OMALIZUMAB
     Indication: Asthma
     Route: 058
     Dates: start: 20200521
  2. XOLAIR [Suspect]
     Active Substance: OMALIZUMAB
     Dosage: 225 MG, BIW (STRENGTH 75 MG+150 MG)
     Route: 058
     Dates: start: 20200521
  3. XOLAIR [Suspect]
     Active Substance: OMALIZUMAB
     Route: 058
     Dates: start: 20210513
  4. XOLAIR [Suspect]
     Active Substance: OMALIZUMAB
     Route: 065
  5. PULMICORT TURBUHALER [Concomitant]
     Active Substance: BUDESONIDE
     Indication: Sinus disorder
     Route: 045
     Dates: start: 2001
  6. SPIRIVA [Concomitant]
     Active Substance: TIOTROPIUM BROMIDE MONOHYDRATE
     Indication: Asthma
     Dosage: 2 DF, QD
     Route: 055
  7. VENTOLIN [Concomitant]
     Active Substance: ALBUTEROL SULFATE
     Indication: Asthma
     Dosage: 2 DF, PRN
     Route: 055
  8. PREDNISONE [Concomitant]
     Active Substance: PREDNISONE
  9. MONTELUKAST [Concomitant]
     Active Substance: MONTELUKAST SODIUM
     Indication: Asthma
     Dosage: UNK UNK, QD
     Route: 048
  10. ALFUZOSIN [Concomitant]
     Active Substance: ALFUZOSIN
     Indication: Prostate infection
     Dosage: UNK UNK, QD
     Route: 048
  11. BREO ELLIPTA [Concomitant]
     Active Substance: FLUTICASONE FUROATE\VILANTEROL TRIFENATATE
     Indication: Product used for unknown indication
     Dosage: 1 UNK, QD
     Route: 055
     Dates: start: 201907
  12. SYMBICORT [Concomitant]
     Active Substance: BUDESONIDE\FORMOTEROL FUMARATE DIHYDRATE
     Indication: Asthma
     Dosage: 2 DF, BID
     Route: 055
     Dates: end: 201907

REACTIONS (15)
  - Pneumonia [Unknown]
  - Secretion discharge [Unknown]
  - Myocardial infarction [Unknown]
  - Increased bronchial secretion [Unknown]
  - Malaise [Unknown]
  - Pericarditis [Unknown]
  - Pancreatitis [Unknown]
  - Pneumonia fungal [Unknown]
  - Pneumonia bacterial [Unknown]
  - Vital functions abnormal [Recovered/Resolved]
  - Hypotension [Unknown]
  - Haemoglobin increased [Unknown]
  - Dizziness [Unknown]
  - Incorrect dose administered [Unknown]
  - Product dose omission issue [Unknown]
